FAERS Safety Report 9507928 (Version 2)
Quarter: 2013Q4

REPORT INFORMATION
  Report Type: Report from Study
  Country: CL (occurrence: CL)
  Receive Date: 20130909
  Receipt Date: 20131007
  Transmission Date: 20140711
  Serious: Yes (Other)
  Sender: FDA-Public Use
  Company Number: PHHY2013CL098555

PATIENT
  Age: 65 Year
  Sex: Female

DRUGS (5)
  1. TAREG D [Suspect]
     Dates: start: 1995
  2. VYTORIN [Concomitant]
     Indication: BLOOD CHOLESTEROL INCREASED
     Dosage: 1 DF, DAILY
     Route: 048
  3. EUTHYROX [Concomitant]
     Dosage: 25 UG, DAILY
     Route: 048
  4. ASPIRIN [Concomitant]
     Indication: PROPHYLAXIS
     Dosage: 100 MG, DAILY
     Route: 048
  5. ESOMEPRAZOLE [Concomitant]
     Dosage: UNK UKN, UNK
     Route: 048

REACTIONS (5)
  - Plasma cell myeloma [Recovering/Resolving]
  - Recurrent cancer [Not Recovered/Not Resolved]
  - Visual impairment [Unknown]
  - Syncope [Unknown]
  - Nausea [Unknown]
